FAERS Safety Report 8416275-8 (Version None)
Quarter: 2012Q2

REPORT INFORMATION
  Report Type: 
  Country: None (occurrence: None)
  Receive Date: 20120606
  Receipt Date: 20120524
  Transmission Date: 20120825
  Serious: Yes (Other)
  Sender: FDA-Public Use
  Company Number: FR-ELI_LILLY_AND_COMPANY-FR201101002308

PATIENT
  Sex: Male

DRUGS (8)
  1. PERGOLIDE MESYLATE [Suspect]
     Dosage: 3.5 MG, QD
     Dates: start: 20050301
  2. PERGOLIDE MESYLATE [Suspect]
     Indication: PARKINSON'S DISEASE
     Dosage: 3MG, DAILY
     Route: 048
     Dates: start: 20001101
  3. PERGOLIDE MESYLATE [Suspect]
     Dosage: 4.5 MG, QD
     Dates: start: 20020601
  4. PERGOLIDE MESYLATE [Suspect]
     Dosage: 5 MG, QD
     Dates: end: 20060201
  5. PERGOLIDE MESYLATE [Suspect]
     Dosage: 6 MG, QD
     Dates: start: 20020101, end: 20020101
  6. PERGOLIDE MESYLATE [Suspect]
     Dosage: 3-6MG, QD
     Dates: start: 20001101, end: 20040301
  7. SINEMET [Concomitant]
     Indication: PARKINSON'S DISEASE
     Dosage: 50/200 LP
     Route: 048
     Dates: start: 20010407, end: 20060201
  8. TOCO [Concomitant]
     Dosage: 500 UNK, UNKNOWN
     Route: 065
     Dates: start: 20030101

REACTIONS (17)
  - SUICIDE ATTEMPT [None]
  - HYPOMANIA [None]
  - ANXIETY [None]
  - MOTOR DYSFUNCTION [None]
  - JEALOUS DELUSION [None]
  - MICTURITION URGENCY [None]
  - PSYCHOMOTOR HYPERACTIVITY [None]
  - HYPOTENSION [None]
  - OVERDOSE [None]
  - SUICIDAL IDEATION [None]
  - EXHIBITIONISM [None]
  - HYPERSEXUALITY [None]
  - DELIRIUM [None]
  - FEEDING DISORDER [None]
  - PATHOLOGICAL GAMBLING [None]
  - WEIGHT INCREASED [None]
  - APATHY [None]
